FAERS Safety Report 18924437 (Version 2)
Quarter: 2021Q2

REPORT INFORMATION
  Report Type: Spontaneous
  Country: US (occurrence: US)
  Receive Date: 20210223
  Receipt Date: 20210511
  Transmission Date: 20210717
  Serious: No
  Sender: FDA-Public Use
  Company Number: US-ASTRAZENECA-2021A049171

PATIENT
  Sex: Female

DRUGS (1)
  1. SYMLIN [Suspect]
     Active Substance: PRAMLINTIDE ACETATE
     Indication: DIABETES MELLITUS
     Route: 058

REACTIONS (8)
  - Wrong technique in device usage process [Unknown]
  - Product preparation error [Unknown]
  - Device malfunction [Unknown]
  - Blood glucose increased [Unknown]
  - Glycosylated haemoglobin increased [Unknown]
  - Product dose omission issue [Unknown]
  - Device mechanical issue [Unknown]
  - Drug dose omission by device [Unknown]
